FAERS Safety Report 11745602 (Version 1)
Quarter: 2015Q4

REPORT INFORMATION
  Report Type: Spontaneous
  Country: US (occurrence: US)
  Receive Date: 20151117
  Receipt Date: 20151117
  Transmission Date: 20160304
  Serious: Yes (Death, Other)
  Sender: FDA-Public Use
  Company Number: US-DRREDDYS-USA/USA/15/0054071

PATIENT
  Age: 52 Year
  Sex: Female

DRUGS (2)
  1. CYCLOSPORINE. [Suspect]
     Active Substance: CYCLOSPORINE
     Indication: IMMUNOSUPPRESSION
     Route: 065
  2. SIROLIMUS. [Suspect]
     Active Substance: SIROLIMUS
     Indication: IMMUNOSUPPRESSION
     Route: 065

REACTIONS (6)
  - Oedema peripheral [Unknown]
  - Pulmonary oedema [Unknown]
  - Renal transplant [Unknown]
  - Cerebrovascular accident [Fatal]
  - Anastomotic complication [Recovered/Resolved]
  - Cardiac failure [Fatal]
